FAERS Safety Report 4805222-3 (Version None)
Quarter: 2005Q4

REPORT INFORMATION
  Report Type: 
  Country: None (occurrence: None)
  Receive Date: 20051017
  Receipt Date: 20051005
  Transmission Date: 20060501
  Serious: Yes (Hospitalization)
  Sender: FDA-Public Use
  Company Number: 2005122506

PATIENT
  Age: 57 Year
  Sex: Female
  Weight: 90.7194 kg

DRUGS (6)
  1. LISTERINE ESSENTIAL CARE TOOTHPASTE (MENTHOL, METHYL SALICYLATE, SODIU [Suspect]
     Dosage: ENOUGH TO FILL BRUSH 2 X A DAY, ORAL TOPICAL
     Route: 061
     Dates: start: 20050801, end: 20050826
  2. ZOLPIDEM TARTRATE [Concomitant]
  3. BUPROPION HYDROCHLORIDE [Concomitant]
  4. VALSARTAN [Concomitant]
  5. ZOLOFT [Concomitant]
  6. ANTI-ASTHMATICS (ANTI-ASTHMATICS) [Concomitant]

REACTIONS (4)
  - CEREBROVASCULAR ACCIDENT [None]
  - HYPOAESTHESIA [None]
  - PARAESTHESIA ORAL [None]
  - TRANSIENT ISCHAEMIC ATTACK [None]
